FAERS Safety Report 8612795 (Version 2)
Quarter: 2012Q4

REPORT INFORMATION
  Report Type: 
  Country: US (occurrence: US)
  Receive Date: 20120613
  Receipt Date: 20121001
  Transmission Date: 20130627
  Serious: Yes (Death)
  Sender: FDA-Public Use
  Company Number: US-BRISTOL-MYERS SQUIBB COMPANY-16670655

PATIENT
  Age: 74 Year
  Sex: Male

DRUGS (1)
  1. DROXIA [Suspect]
     Indication: THROMBOCYTOSIS
     Dosage: 07may09-Mar2009:500mg, mar09-Dec2010-500mg bid 3 day/wk + 500mg/d4 days a wk
     Route: 048
     Dates: start: 20070507, end: 201012

REACTIONS (1)
  - Ischaemic cardiomyopathy [Fatal]
